FAERS Safety Report 16920437 (Version 1)
Quarter: 2019Q4

REPORT INFORMATION
  Report Type: Report from Study
  Country: US (occurrence: US)
  Receive Date: 20191015
  Receipt Date: 20191015
  Transmission Date: 20200122
  Serious: Yes (Hospitalization)
  Sender: FDA-Public Use
  Company Number: US-PFIZER INC-2019442152

PATIENT
  Age: 78 Year
  Sex: Male
  Weight: 72 kg

DRUGS (6)
  1. CYTARABINE. [Suspect]
     Active Substance: CYTARABINE
     Indication: ACUTE MYELOID LEUKAEMIA
     Dosage: 1.0 G, BID ON DAYS 1, 3 AND 5 (CONSOLIDATION)
     Route: 042
  2. BLINDED GLASDEGIB [Suspect]
     Active Substance: GLASDEGIB
     Indication: ACUTE MYELOID LEUKAEMIA
     Dosage: 75 MG, ONCE DAILY CONTINUOUS
     Route: 048
     Dates: start: 20190816, end: 20191008
  3. BLINDED PF-04449913 [Suspect]
     Active Substance: GLASDEGIB
     Indication: ACUTE MYELOID LEUKAEMIA
     Dosage: 75 MG, ONCE DAILY CONTINUOUS
     Route: 048
     Dates: start: 20190816, end: 20191008
  4. BLINDED PLACEBO [Suspect]
     Active Substance: INVESTIGATIONAL PRODUCT
     Indication: ACUTE MYELOID LEUKAEMIA
     Dosage: 75 MG, ONCE DAILY CONTINUOUS
     Route: 048
     Dates: start: 20190816, end: 20191008
  5. CYTARABINE. [Suspect]
     Active Substance: CYTARABINE
     Indication: ACUTE MYELOID LEUKAEMIA
     Dosage: DAILY BY CONTINUOUS INFUSION (INDUCTION)
     Route: 041
  6. DAUNORUBICIN [Suspect]
     Active Substance: DAUNORUBICIN
     Indication: ACUTE MYELOID LEUKAEMIA
     Dosage: DAILY BY CONTINUOUS INFUSION
     Route: 041

REACTIONS (1)
  - Febrile neutropenia [Not Recovered/Not Resolved]

NARRATIVE: CASE EVENT DATE: 20191009
